FAERS Safety Report 6091182-7 (Version None)
Quarter: 2009Q1

REPORT INFORMATION
  Report Type: 
  Country: None (occurrence: None)
  Receive Date: 20090223
  Receipt Date: 20090223
  Transmission Date: 20090719
  Serious: Yes (Hospitalization, Other)
  Sender: FDA-Public Use
  Company Number: None

PATIENT
  Age: 45 Year
  Sex: Male
  Weight: 90.1 kg

DRUGS (1)
  1. GAMUNEX [Suspect]
     Dosage: 40GM ONCE IV DRIP
     Route: 041
     Dates: start: 20070402, end: 20070402

REACTIONS (1)
  - CREUTZFELDT-JAKOB DISEASE [None]
